FAERS Safety Report 5208284-7 (Version None)
Quarter: 2007Q1

REPORT INFORMATION
  Report Type: 
  Country: None (occurrence: None)
  Receive Date: 20070110
  Receipt Date: 20070110
  Transmission Date: 20070707
  Serious: Yes (Death)
  Sender: FDA-Public Use
  Company Number: None

PATIENT
  Age: 43 Year
  Sex: Male
  Weight: 107.0489 kg

DRUGS (7)
  1. FENTANYL TRANSDERMAL SYSTEM [Suspect]
     Indication: PAIN
     Dosage: 75 MCG/HR TRANSDERMAL EVERY 72 HOURS
     Dates: start: 20060907, end: 20060908
  2. ATIVAN [Concomitant]
  3. CYMBALTA [Concomitant]
  4. XANAX [Concomitant]
  5. NEURONTID [Concomitant]
  6. NICOTINE [Concomitant]
  7. EFFEXOR XR [Concomitant]

REACTIONS (3)
  - INTENTIONAL DRUG MISUSE [None]
  - LOSS OF CONSCIOUSNESS [None]
  - PULSE ABSENT [None]
